FAERS Safety Report 7170616-0 (Version None)
Quarter: 2010Q4

REPORT INFORMATION
  Report Type: 
  Country: None (occurrence: None)
  Receive Date: 20101217
  Receipt Date: 20101209
  Transmission Date: 20110411
  Serious: Yes (Other)
  Sender: FDA-Public Use
  Company Number: A0897885A

PATIENT
  Sex: Male
  Weight: 67.9 kg

DRUGS (2)
  1. TOPOTECAN [Suspect]
     Dosage: 3.25MG PER DAY
     Route: 048
     Dates: start: 20101115, end: 20101124
  2. RADIOTHERAPY [Suspect]
     Dosage: 3GY PER DAY
     Route: 061
     Dates: start: 20101115, end: 20101129

REACTIONS (1)
  - ACCIDENTAL OVERDOSE [None]
